FAERS Safety Report 5174611-2 (Version None)
Quarter: 2006Q4

REPORT INFORMATION
  Report Type: 
  Country: None (occurrence: None)
  Receive Date: 20061206
  Receipt Date: 20061201
  Transmission Date: 20070319
  Serious: Yes (Hospitalization)
  Sender: FDA-Public Use
  Company Number: HQWYE798208NOV06

PATIENT
  Age: 67 Year
  Sex: Male

DRUGS (14)
  1. RAPAMUNE [Suspect]
     Indication: PROPHYLAXIS AGAINST TRANSPLANT REJECTION
     Dosage: SEE IMAGE
     Route: 048
     Dates: start: 20060621, end: 20060101
  2. RAPAMUNE [Suspect]
     Indication: PROPHYLAXIS AGAINST TRANSPLANT REJECTION
     Dosage: SEE IMAGE
     Route: 048
     Dates: start: 20060101
  3. VALSARTAN [Concomitant]
  4. ASPIRIN [Concomitant]
  5. ISOSORBIDE MONONITRATE [Concomitant]
  6. ISOSORBIDE MONONITRATE [Concomitant]
  7. NITROSTAT [Concomitant]
  8. PREDNISOLONE [Concomitant]
  9. SENOKOT [Concomitant]
  10. DOXAZOSIN (DOXAZOSIN) [Concomitant]
  11. DOXAZOSIN (DOXAZOSIN) [Concomitant]
  12. FELODIPINE [Concomitant]
  13. FEXOFENADINE HCL [Concomitant]
  14. CLEOCIN T [Concomitant]

REACTIONS (16)
  - ACUTE PULMONARY OEDEMA [None]
  - ANGINA UNSTABLE [None]
  - AORTIC CALCIFICATION [None]
  - AORTIC DISORDER [None]
  - CARDIAC FAILURE CONGESTIVE [None]
  - CARDIOMEGALY [None]
  - HAEMATOCRIT DECREASED [None]
  - HAEMOGLOBIN DECREASED [None]
  - MYOCARDIAL ISCHAEMIA [None]
  - PLATELET COUNT DECREASED [None]
  - PNEUMONIA [None]
  - PULMONARY OEDEMA [None]
  - RESPIRATORY FAILURE [None]
  - SPUTUM CULTURE POSITIVE [None]
  - TUBERCULOSIS [None]
  - URINE OUTPUT DECREASED [None]
